FAERS Safety Report 6693310-9 (Version None)
Quarter: 2010Q2

REPORT INFORMATION
  Report Type: 
  Country: None (occurrence: None)
  Receive Date: 20100422
  Receipt Date: 20100413
  Transmission Date: 20101027
  Serious: Yes (Hospitalization)
  Sender: FDA-Public Use
  Company Number: GB-GENENTECH-235679

PATIENT
  Sex: Male

DRUGS (6)
  1. RITUXIMAB [Suspect]
     Indication: ANTI-NEUTROPHIL CYTOPLASMIC ANTIBODY POSITIVE VASCULITIS
     Dosage: 375 MG/M2, QID
     Route: 042
     Dates: start: 20061127
  2. CYCLOPHOSPHAMIDE [Concomitant]
     Indication: ANTI-NEUTROPHIL CYTOPLASMIC ANTIBODY POSITIVE VASCULITIS
     Dates: start: 20061127
  3. PREDNISOLONE [Concomitant]
     Indication: ANTI-NEUTROPHIL CYTOPLASMIC ANTIBODY POSITIVE VASCULITIS
     Dates: start: 20061127
  4. DILTIAZEM HCL [Concomitant]
     Indication: DRUG USE FOR UNKNOWN INDICATION
  5. ISOSORBIDE MONONITRATE [Concomitant]
     Indication: DRUG USE FOR UNKNOWN INDICATION
  6. COVERSYL [Concomitant]
     Indication: DRUG USE FOR UNKNOWN INDICATION

REACTIONS (1)
  - DEEP VEIN THROMBOSIS [None]
